FAERS Safety Report 17879346 (Version 6)
Quarter: 2022Q2

REPORT INFORMATION
  Report Type: Report from Study
  Country: CA (occurrence: CA)
  Receive Date: 20200610
  Receipt Date: 20220404
  Transmission Date: 20220720
  Serious: Yes (Other)
  Sender: FDA-Public Use
  Company Number: PHHY2018CA101135

PATIENT
  Age: 38 Year
  Sex: Female

DRUGS (3)
  1. COSENTYX [Suspect]
     Active Substance: SECUKINUMAB
     Indication: Ankylosing spondylitis
     Dosage: 150 MG, QW
     Route: 058
     Dates: start: 20180912
  2. COSENTYX [Suspect]
     Active Substance: SECUKINUMAB
     Dosage: 150 MG, Q2W
     Route: 058
  3. NAPROXEN [Concomitant]
     Active Substance: NAPROXEN
     Indication: Product used for unknown indication
     Dosage: 1 DOSAGE FORM, TID
     Route: 048
     Dates: start: 201703

REACTIONS (27)
  - Loss of consciousness [Unknown]
  - Wound infection [Unknown]
  - Ankylosing spondylitis [Unknown]
  - Arthralgia [Not Recovered/Not Resolved]
  - Back pain [Not Recovered/Not Resolved]
  - Neck pain [Unknown]
  - Pain [Not Recovered/Not Resolved]
  - Musculoskeletal stiffness [Recovering/Resolving]
  - Discomfort [Unknown]
  - Mobility decreased [Unknown]
  - Spinal disorder [Unknown]
  - Greater trochanteric pain syndrome [Unknown]
  - Wound [Unknown]
  - Ear infection viral [Unknown]
  - Fatigue [Not Recovered/Not Resolved]
  - Impaired healing [Unknown]
  - Wound complication [Unknown]
  - Dermatitis allergic [Unknown]
  - Anxiety [Unknown]
  - Injection site bruising [Unknown]
  - Needle issue [Unknown]
  - Crying [Unknown]
  - Nasopharyngitis [Recovering/Resolving]
  - Injection site haemorrhage [Recovered/Resolved]
  - Product physical issue [Unknown]
  - Inappropriate schedule of product administration [Unknown]
  - Therapeutic response shortened [Unknown]

NARRATIVE: CASE EVENT DATE: 20180912
